FAERS Safety Report 8010299-0 (Version None)
Quarter: 2011Q4

REPORT INFORMATION
  Report Type: 
  Country: None (occurrence: None)
  Receive Date: 20111228
  Receipt Date: 20111219
  Transmission Date: 20120403
  Serious: Yes (Death)
  Sender: FDA-Public Use
  Company Number: US-PFIZER INC-2011310135

PATIENT
  Age: 55 Year
  Sex: Female

DRUGS (4)
  1. CYCLOBENZAPRINE [Suspect]
     Dosage: UNK
     Route: 048
  2. BENZTROPEINE HYDROCHLORIDE [Suspect]
     Dosage: UNK
     Route: 048
  3. VALPROIC ACID [Suspect]
     Dosage: UNK
     Route: 048
  4. ZIPRASIDONE HCL [Suspect]
     Dosage: UNK
     Route: 048

REACTIONS (1)
  - COMPLETED SUICIDE [None]
